FAERS Safety Report 5910385-2 (Version None)
Quarter: 2008Q4

REPORT INFORMATION
  Report Type: 
  Country: None (occurrence: None)
  Receive Date: 20081007
  Receipt Date: 20080111
  Transmission Date: 20090506
  Serious: No
  Sender: FDA-Public Use
  Company Number: US-ASTRAZENECA-2008UW00865

PATIENT
  Age: 66 Year
  Sex: Female
  Weight: 77.1 kg

DRUGS (2)
  1. ARIMIDEX [Suspect]
     Indication: BREAST CANCER
     Route: 048
     Dates: start: 20061001
  2. BLOOD PERSSURE MEDICATION [Concomitant]

REACTIONS (4)
  - FORMICATION [None]
  - HYPERHIDROSIS [None]
  - HYPOAESTHESIA [None]
  - VULVOVAGINITIS [None]
